FAERS Safety Report 10839330 (Version 1)
Quarter: 2015Q1

REPORT INFORMATION
  Report Type: Report from Study
  Country: US (occurrence: US)
  Receive Date: 20150220
  Receipt Date: 20150220
  Transmission Date: 20150721
  Serious: No
  Sender: FDA-Public Use
  Company Number: US-ABBVIE-14P-163-1240991-00

PATIENT
  Age: 52 Year
  Sex: Female

DRUGS (4)
  1. NESINA [Concomitant]
     Active Substance: ALOGLIPTIN BENZOATE
     Indication: PRODUCT USED FOR UNKNOWN INDICATION
  2. TORSEMIDE. [Concomitant]
     Active Substance: TORSEMIDE
     Indication: PRODUCT USED FOR UNKNOWN INDICATION
  3. PROAIR HFA [Concomitant]
     Active Substance: ALBUTEROL SULFATE
     Indication: PRODUCT USED FOR UNKNOWN INDICATION
  4. HUMIRA [Suspect]
     Active Substance: ADALIMUMAB
     Indication: CROHN^S DISEASE
     Dates: start: 201306, end: 201405

REACTIONS (1)
  - Drug specific antibody present [Not Recovered/Not Resolved]

NARRATIVE: CASE EVENT DATE: 201405
